FAERS Safety Report 6630160-3 (Version None)
Quarter: 2010Q1

REPORT INFORMATION
  Report Type: 
  Country: None (occurrence: None)
  Receive Date: 20100311
  Receipt Date: 20100305
  Transmission Date: 20100710
  Serious: Yes (Other)
  Sender: FDA-Public Use
  Company Number: US-JNJCH-2010005185

PATIENT

DRUGS (2)
  1. ASPIRIN [Suspect]
     Indication: DRUG USE FOR UNKNOWN INDICATION
     Route: 048
  2. ETHANOL [Suspect]
     Indication: DRUG USE FOR UNKNOWN INDICATION
     Dosage: TEXT:10 TO 15 OUNCES UNSPECIFIED
     Route: 065

REACTIONS (4)
  - CONJUNCTIVAL HAEMORRHAGE [None]
  - HYPHAEMA [None]
  - PLATELET DISORDER [None]
  - SKIN LESION [None]
